FAERS Safety Report 5404180-0 (Version None)
Quarter: 2007Q3

REPORT INFORMATION
  Report Type: 
  Country: None (occurrence: None)
  Receive Date: 20070802
  Receipt Date: 20070724
  Transmission Date: 20080115
  Serious: Yes (Death, Hospitalization)
  Sender: FDA-Public Use
  Company Number: US-GENENTECH-244177

PATIENT
  Sex: Male

DRUGS (8)
  1. BEVACIZUMAB [Suspect]
     Indication: HEPATIC NEOPLASM MALIGNANT
     Dosage: 5 MG/KG, Q3W
     Route: 042
     Dates: start: 20070621
  2. OXALIPLATIN [Suspect]
     Indication: HEPATIC NEOPLASM MALIGNANT
     Dosage: 130 MG/M2, UNK
     Route: 042
  3. XELODA [Suspect]
     Indication: HEPATIC NEOPLASM MALIGNANT
     Dosage: 1650 MG, BID
     Route: 048
     Dates: start: 20070621, end: 20070704
  4. BENADRYL [Concomitant]
     Indication: PREMEDICATION
     Dosage: 25 MG, SINGLE
     Route: 042
     Dates: start: 20070621
  5. DECADRON [Concomitant]
     Indication: PREMEDICATION
     Dosage: 10 MG, UNK
     Route: 042
     Dates: start: 20070621
  6. ZOFRAN [Concomitant]
     Indication: PREMEDICATION
     Dosage: 24 MG, UNK
     Route: 042
     Dates: start: 20070621
  7. ATIVAN [Concomitant]
     Indication: PREMEDICATION
     Dosage: 1 MG, UNK
     Route: 042
     Dates: start: 20070621
  8. XANAX [Concomitant]
     Indication: ANXIETY
     Dosage: 5 MG, PRN

REACTIONS (2)
  - GASTROINTESTINAL HAEMORRHAGE [None]
  - RENAL FAILURE [None]
